FAERS Safety Report 11434258 (Version 1)
Quarter: 2015Q3

REPORT INFORMATION
  Report Type: Spontaneous
  Country: US (occurrence: US)
  Receive Date: 20150831
  Receipt Date: 20150831
  Transmission Date: 20151125
  Serious: Yes (Life-Threatening, Hospitalization, Other)
  Sender: FDA-Public Use
  Company Number: US-ACTAVIS-2015-01080

PATIENT
  Age: 30 Year
  Sex: Male

DRUGS (4)
  1. LOPERAMIDE [Interacting]
     Active Substance: LOPERAMIDE
     Indication: DRUG ABUSE
     Dosage: 400 MG, DAILY (200 TABLETS, 2 MG EACH)
     Route: 048
  2. BUPRENORPHINE HYDROCHLORIDE (AELLC) [Suspect]
     Active Substance: BUPRENORPHINE HYDROCHLORIDE
     Indication: PRODUCT USED FOR UNKNOWN INDICATION
     Dosage: 12 MG, SINGLE
     Route: 060
  3. AMIODARONE (UNKNOWN) [Interacting]
     Active Substance: AMIODARONE
     Indication: CARDIAC DISORDER
     Dosage: 150 MG, SINGLE
     Route: 042
  4. LOPERAMIDE [Interacting]
     Active Substance: LOPERAMIDE
     Indication: INTENTIONAL OVERDOSE
     Dosage: 400 MG, DAILY (200 TABLETS, 2 MG EACH)
     Route: 048

REACTIONS (10)
  - Drug abuse [Recovered/Resolved]
  - Cardiac arrest [Recovered/Resolved]
  - Ventricular arrhythmia [Recovered/Resolved]
  - Electrocardiogram QRS complex prolonged [Recovered/Resolved]
  - Drug level above therapeutic [Unknown]
  - Electrocardiogram QT prolonged [Recovered/Resolved]
  - Intentional overdose [Recovered/Resolved]
  - Syncope [Recovered/Resolved]
  - Drug interaction [Recovered/Resolved]
  - Ventricular tachycardia [Recovered/Resolved]
